FAERS Safety Report 9551344 (Version 1)
Quarter: 2013Q3

REPORT INFORMATION
  Report Type: Spontaneous
  Country: US (occurrence: US)
  Receive Date: 20130925
  Receipt Date: 20130925
  Transmission Date: 20140515
  Serious: Yes (Hospitalization)
  Sender: FDA-Public Use
  Company Number: US-BRISTOL-MYERS SQUIBB COMPANY-19384155

PATIENT
  Age: 79 Year
  Sex: Female

DRUGS (7)
  1. COUMADIN [Suspect]
     Dosage: STARTED IN 1990^S, IN 2013 INTERRUPTED DUE TO SURGERY AND RE-STARTED AFTER SURGERY
  2. DIGOXIN [Concomitant]
  3. AMLODIPINE [Concomitant]
  4. PRAVASTATIN SODIUM [Concomitant]
  5. FUROSEMIDE [Concomitant]
  6. POTASSIUM [Concomitant]
  7. LOVAZA [Concomitant]

REACTIONS (1)
  - Arthropathy [Unknown]
